FAERS Safety Report 6815587-9 (Version None)
Quarter: 2010Q3

REPORT INFORMATION
  Report Type: 
  Country: None (occurrence: None)
  Receive Date: 20100702
  Receipt Date: 20100625
  Transmission Date: 20110219
  Serious: Yes (Hospitalization)
  Sender: FDA-Public Use
  Company Number: JP-ROCHE-712389

PATIENT
  Sex: Female
  Weight: 58 kg

DRUGS (6)
  1. TOCILIZUMAB [Suspect]
     Indication: RHEUMATOID ARTHRITIS
     Route: 041
     Dates: start: 20091005, end: 20091005
  2. TOCILIZUMAB [Suspect]
     Route: 041
     Dates: start: 20091102, end: 20091102
  3. TOCILIZUMAB [Suspect]
     Route: 041
     Dates: start: 20091130, end: 20091130
  4. PREDONINE [Suspect]
     Indication: RHEUMATOID ARTHRITIS
     Route: 048
  5. RHEUMATREX [Concomitant]
     Route: 048
     Dates: end: 20091130
  6. GASPORT-D [Concomitant]
     Route: 048

REACTIONS (1)
  - PNEUMOCYSTIS JIROVECI PNEUMONIA [None]
